FAERS Safety Report 9448505 (Version 1)
Quarter: 2013Q3

REPORT INFORMATION
  Report Type: Spontaneous
  Country: US (occurrence: US)
  Receive Date: 20130808
  Receipt Date: 20130808
  Transmission Date: 20140515
  Serious: Yes (Other)
  Sender: FDA-Public Use
  Company Number: US-JNJFOC-20130801730

PATIENT
  Age: 49 Year
  Sex: Female
  Weight: 62.6 kg

DRUGS (3)
  1. REMICADE [Suspect]
     Indication: CROHN^S DISEASE
     Route: 042
     Dates: start: 200104
  2. 6MP [Suspect]
     Indication: CROHN^S DISEASE
     Route: 048
     Dates: start: 1997
  3. PREDNISONE [Concomitant]
     Indication: CROHN^S DISEASE
     Route: 048
     Dates: start: 1997

REACTIONS (3)
  - Breast cancer [Unknown]
  - Anal abscess [Recovered/Resolved]
  - Anal fistula [Not Recovered/Not Resolved]
